FAERS Safety Report 5803687-1 (Version None)
Quarter: 2008Q3

REPORT INFORMATION
  Report Type: 
  Country: None (occurrence: None)
  Receive Date: 20080708
  Receipt Date: 20070801
  Transmission Date: 20090109
  Serious: No
  Sender: FDA-Public Use
  Company Number: US-AMGEN-KDL230687

PATIENT
  Sex: Female

DRUGS (4)
  1. KINERET [Suspect]
     Indication: JUVENILE ARTHRITIS
     Route: 058
     Dates: start: 20060301
  2. METHOTREXATE [Concomitant]
  3. PREDNISONE TAB [Concomitant]
  4. CYCLOSPORINE [Concomitant]

REACTIONS (4)
  - DRUG INEFFECTIVE [None]
  - LYMPHADENOPATHY [None]
  - PAIN [None]
  - PYREXIA [None]
